FAERS Safety Report 5658937-1 (Version None)
Quarter: 2008Q1

REPORT INFORMATION
  Report Type: 
  Country: None (occurrence: None)
  Receive Date: 20080310
  Receipt Date: 20070629
  Transmission Date: 20080703
  Serious: Yes (Other)
  Sender: FDA-Public Use
  Company Number: US-BAYER-200711400BCC

PATIENT
  Sex: Female
  Weight: 79 kg

DRUGS (5)
  1. ALEVE [Suspect]
     Indication: MYALGIA
     Route: 048
     Dates: start: 20050504
  2. VESICARE [Concomitant]
  3. ZOCOR [Concomitant]
  4. LISINOPRIL HTC [Concomitant]
  5. ATENOLOL [Concomitant]

REACTIONS (2)
  - GASTRIC HAEMORRHAGE [None]
  - MUSCULAR WEAKNESS [None]
